FAERS Safety Report 5217162-9 (Version None)
Quarter: 2007Q1

REPORT INFORMATION
  Report Type: 
  Country: None (occurrence: None)
  Receive Date: 20070122
  Receipt Date: 20070122
  Transmission Date: 20070707
  Serious: Yes (Hospitalization)
  Sender: FDA-Public Use
  Company Number: None

PATIENT
  Age: 63 Year
  Sex: Female
  Weight: 156 kg

DRUGS (1)
  1. ALLOPURINOL SODIUM [Suspect]
     Dosage: 300MG  DAILY  PO   PRIOR TO 2/17/2006
     Route: 048

REACTIONS (2)
  - CONJUNCTIVITIS [None]
  - STEVENS-JOHNSON SYNDROME [None]
